FAERS Safety Report 11138716 (Version 1)
Quarter: 2015Q2

REPORT INFORMATION
  Report Type: Spontaneous
  Country: GB (occurrence: GB)
  Receive Date: 20150527
  Receipt Date: 20150527
  Transmission Date: 20150821
  Serious: Yes (Disabling, Other)
  Sender: FDA-Public Use
  Company Number: GB-ACCORD-030878

PATIENT
  Age: 72 Year
  Sex: Female
  Weight: 53.52 kg

DRUGS (6)
  1. SELENIUM [Concomitant]
     Active Substance: SELENIUM
  2. RETINOL [Concomitant]
     Active Substance: RETINOL
  3. TOCOPHEROL [Concomitant]
     Active Substance: TOCOPHEROL
  4. ASCORBIC ACID. [Concomitant]
     Active Substance: ASCORBIC ACID
  5. COD-LIVER OIL [Concomitant]
     Active Substance: FISH OIL
  6. LETROZOLE. [Suspect]
     Active Substance: LETROZOLE
     Indication: BREAST CANCER
     Route: 048
     Dates: start: 201403, end: 20150415

REACTIONS (3)
  - Arthralgia [Recovering/Resolving]
  - Myalgia [Recovering/Resolving]
  - Mobility decreased [Recovering/Resolving]

NARRATIVE: CASE EVENT DATE: 201403
